FAERS Safety Report 7933392-7 (Version None)
Quarter: 2011Q4

REPORT INFORMATION
  Report Type: 
  Country: None (occurrence: None)
  Receive Date: 20111122
  Receipt Date: 20111122
  Transmission Date: 20120403
  Serious: Yes (Hospitalization, Other)
  Sender: FDA-Public Use
  Company Number: None

PATIENT
  Age: 44 Year
  Sex: Female
  Weight: 56.699 kg

DRUGS (1)
  1. MIRENA [Suspect]
     Dosage: 52 MG

REACTIONS (1)
  - NO ADVERSE EVENT [None]
